FAERS Safety Report 8553481-6 (Version None)
Quarter: 2012Q3

REPORT INFORMATION
  Report Type: 
  Country: None (occurrence: None)
  Receive Date: 20120731
  Receipt Date: 20120724
  Transmission Date: 20120928
  Serious: Yes (Other)
  Sender: FDA-Public Use
  Company Number: US-PFIZER INC-2012093848

PATIENT
  Sex: Female

DRUGS (3)
  1. XALKORI [Suspect]
     Dosage: UNK
  2. WARFARIN [Suspect]
     Dosage: UNK
  3. XALKORI [Suspect]
     Indication: LUNG NEOPLASM MALIGNANT
     Dosage: 250 MG, 2X/DAY
     Route: 048
     Dates: start: 20120403

REACTIONS (5)
  - DEHYDRATION [None]
  - DIARRHOEA [None]
  - MUSCULAR WEAKNESS [None]
  - INTERNATIONAL NORMALISED RATIO INCREASED [None]
  - THROMBOSIS [None]
